FAERS Safety Report 7748444-4 (Version None)
Quarter: 2011Q3

REPORT INFORMATION
  Report Type: 
  Country: None (occurrence: None)
  Receive Date: 20110914
  Receipt Date: 20110906
  Transmission Date: 20111222
  Serious: Yes (Other)
  Sender: FDA-Public Use
  Company Number: JO-BIOGENIDEC-2011BI025684

PATIENT
  Age: 47 Year
  Sex: Female

DRUGS (2)
  1. TYSABRI [Suspect]
     Indication: RELAPSING-REMITTING MULTIPLE SCLEROSIS
     Route: 042
     Dates: start: 20110401
  2. SEROQUEL [Concomitant]

REACTIONS (1)
  - COGNITIVE DISORDER [None]
